FAERS Safety Report 15282992 (Version 1)
Quarter: 2018Q3

REPORT INFORMATION
  Report Type: Spontaneous
  Country: US (occurrence: US)
  Receive Date: 20180816
  Receipt Date: 20180816
  Transmission Date: 20181010
  Serious: No
  Sender: FDA-Public Use
  Company Number: US-ACCORD-066377

PATIENT
  Age: 51 Year
  Sex: Female
  Weight: 83.91 kg

DRUGS (1)
  1. OLMESARTAN ACCORD [Suspect]
     Active Substance: OLMESARTAN
     Indication: HYPERTENSION
     Dosage: STRENGTH: 40 MG
     Route: 048
     Dates: start: 20180124, end: 20180418

REACTIONS (7)
  - Nausea [Recovering/Resolving]
  - Abdominal distension [Recovering/Resolving]
  - Flatulence [Recovering/Resolving]
  - Abdominal pain upper [Recovering/Resolving]
  - Constipation [Recovering/Resolving]
  - Insomnia [Recovering/Resolving]
  - Diarrhoea [Recovering/Resolving]
